FAERS Safety Report 11614427 (Version 2)
Quarter: 2016Q1

REPORT INFORMATION
  Report Type: Report from Study
  Country: CA (occurrence: CA)
  Receive Date: 20151009
  Receipt Date: 20160208
  Transmission Date: 20160525
  Serious: Yes (Hospitalization, Other)
  Sender: FDA-Public Use
  Company Number: CA-ROCHE-1227546

PATIENT
  Sex: Female
  Weight: 115.2 kg

DRUGS (19)
  1. ACETAMINOPHEN. [Concomitant]
     Active Substance: ACETAMINOPHEN
     Indication: PREMEDICATION
     Route: 048
     Dates: start: 20100113, end: 20100624
  2. NOVOLIN GE NPH [Concomitant]
     Active Substance: INSULIN BEEF
     Route: 065
  3. PREDNISONE. [Concomitant]
     Active Substance: PREDNISONE
  4. LEVOTHYROXINE SODIUM. [Concomitant]
     Active Substance: LEVOTHYROXINE SODIUM
  5. DIPHENHYDRAMINE HCL [Concomitant]
     Active Substance: DIPHENHYDRAMINE HYDROCHLORIDE
     Indication: PREMEDICATION
     Route: 048
     Dates: start: 20100113, end: 20100624
  6. SPIRONOLACTONE. [Concomitant]
     Active Substance: SPIRONOLACTONE
  7. ARAVA [Concomitant]
     Active Substance: LEFLUNOMIDE
  8. LOPERAMIDE [Concomitant]
     Active Substance: LOPERAMIDE
  9. RITUXAN [Suspect]
     Active Substance: RITUXIMAB
     Indication: RHEUMATOID ARTHRITIS
     Route: 042
     Dates: start: 20100113, end: 20100624
  10. METHOTREXATE [Concomitant]
     Active Substance: METHOTREXATE
     Route: 065
  11. FOLIC ACID. [Concomitant]
     Active Substance: FOLIC ACID
  12. HYDROCHLOROTHIAZIDE. [Concomitant]
     Active Substance: HYDROCHLOROTHIAZIDE
  13. IMODIUM [Concomitant]
     Active Substance: LOPERAMIDE HYDROCHLORIDE
  14. AMITRIPTYLINE HCL [Concomitant]
     Active Substance: AMITRIPTYLINE
  15. METHYLPREDNISOLONE. [Concomitant]
     Active Substance: METHYLPREDNISOLONE
     Indication: PREMEDICATION
     Route: 042
     Dates: start: 20100113, end: 20100624
  16. LOSEC [Concomitant]
     Active Substance: OMEPRAZOLE
  17. CELEXA [Concomitant]
     Active Substance: CITALOPRAM HYDROBROMIDE
  18. IBUPROFEN. [Concomitant]
     Active Substance: IBUPROFEN
  19. TELMISARTAN. [Concomitant]
     Active Substance: TELMISARTAN

REACTIONS (11)
  - Abscess oral [Unknown]
  - Thyroid mass [Unknown]
  - Cellulitis [Unknown]
  - Tooth extraction [Not Recovered/Not Resolved]
  - Tooth disorder [Unknown]
  - Osteonecrosis [Unknown]
  - Diabetes mellitus [Not Recovered/Not Resolved]
  - Mouth ulceration [Not Recovered/Not Resolved]
  - Drug ineffective [Unknown]
  - Chronic sinusitis [Unknown]
  - Infection [Unknown]

NARRATIVE: CASE EVENT DATE: 2013
